FAERS Safety Report 19087451 (Version 1)
Quarter: 2021Q2

REPORT INFORMATION
  Report Type: Spontaneous
  Country: US (occurrence: US)
  Receive Date: 20210402
  Receipt Date: 20210402
  Transmission Date: 20210717
  Serious: No
  Sender: FDA-Public Use
  Company Number: US-PFIZER INC-2021331134

PATIENT
  Age: 35 Year
  Sex: Male

DRUGS (4)
  1. ALPRAZOLAM. [Suspect]
     Active Substance: ALPRAZOLAM
     Indication: BIPOLAR I DISORDER
  2. MODERNA COVID?19 VACCINE [Concomitant]
     Active Substance: CX-024414
     Dosage: UNK
     Dates: start: 20210303
  3. ALPRAZOLAM. [Suspect]
     Active Substance: ALPRAZOLAM
     Indication: INJURY
     Dosage: 2 MG, DAILY (SPLIT IT UP ON THE DAILY, HE WILL TAKE 1 MG AT A TIME AS NECESSARY UP TO 2 MG TOTAL)
     Route: 048
     Dates: start: 2018
  4. ALPRAZOLAM. [Suspect]
     Active Substance: ALPRAZOLAM
     Indication: SURGERY

REACTIONS (5)
  - Off label use [Unknown]
  - Poor quality product administered [Unknown]
  - Intentional product use issue [Unknown]
  - Weight decreased [Unknown]
  - Drug ineffective [Unknown]

NARRATIVE: CASE EVENT DATE: 2018
